FAERS Safety Report 6990204-6 (Version None)
Quarter: 2010Q3

REPORT INFORMATION
  Report Type: 
  Country: None (occurrence: None)
  Receive Date: 20100916
  Receipt Date: 20100506
  Transmission Date: 20110219
  Serious: Yes (Other)
  Sender: FDA-Public Use
  Company Number: US-PFIZER INC-2009279810

PATIENT
  Sex: Female
  Weight: 61.224 kg

DRUGS (2)
  1. LYRICA [Suspect]
     Indication: NEURALGIA
     Dosage: 75 MG, 2X/DAY
     Route: 048
  2. MEPERIDINE HCL [Concomitant]
     Indication: PAIN
     Dosage: UNK

REACTIONS (1)
  - HYPERTENSION [None]
